FAERS Safety Report 10029370 (Version 1)
Quarter: 2014Q1

REPORT INFORMATION
  Report Type: Report from Study
  Country: MX (occurrence: MX)
  Receive Date: 20140322
  Receipt Date: 20140322
  Transmission Date: 20141002
  Serious: Yes (Hospitalization, Other)
  Sender: FDA-Public Use
  Company Number: PHHY2014MX033893

PATIENT
  Age: 90 Year
  Sex: Female

DRUGS (1)
  1. EXELON PATCH [Suspect]
     Indication: DEMENTIA ALZHEIMER^S TYPE
     Dosage: 1 DF, DAILY (ONE 10 CM2/9.5 MG PATCH, DAILY)
     Route: 062
     Dates: start: 201311, end: 201401

REACTIONS (10)
  - Pneumonia [Not Recovered/Not Resolved]
  - Chest injury [Not Recovered/Not Resolved]
  - Senile dementia [Not Recovered/Not Resolved]
  - Abasia [Not Recovered/Not Resolved]
  - Gastritis [Unknown]
  - Haematemesis [Not Recovered/Not Resolved]
  - Sleep disorder [Unknown]
  - Hernia [Not Recovered/Not Resolved]
  - Contusion [Not Recovered/Not Resolved]
  - Local swelling [Not Recovered/Not Resolved]
